FAERS Safety Report 10243528 (Version 1)
Quarter: 2014Q2

REPORT INFORMATION
  Report Type: Spontaneous
  Country: US (occurrence: None)
  Receive Date: 20140616
  Receipt Date: 20140616
  Transmission Date: 20141212
  Serious: Yes (Hospitalization)
  Sender: FDA-Public Use
  Company Number: None

PATIENT
  Age: 53 Year
  Sex: Male
  Weight: 115 kg

DRUGS (2)
  1. CLOZAPINE (CLOZARIL) [Suspect]
     Indication: SCHIZOPHRENIA, PARANOID TYPE
     Route: 048
     Dates: start: 20131223, end: 20140109
  2. CLOZAPINE (CLOZARIL) [Suspect]
     Route: 048
     Dates: start: 20131223, end: 20140109

REACTIONS (8)
  - Pyrexia [None]
  - Tachycardia [None]
  - Vomiting [None]
  - Diarrhoea [None]
  - Pericardial effusion [None]
  - Nausea [None]
  - Myocarditis [None]
  - Brain natriuretic peptide increased [None]
